FAERS Safety Report 9196647 (Version 2)
Quarter: 2013Q2

REPORT INFORMATION
  Report Type: Spontaneous
  Country: US (occurrence: US)
  Receive Date: 20130328
  Receipt Date: 20130422
  Transmission Date: 20140414
  Serious: Yes (Hospitalization, Other)
  Sender: FDA-Public Use
  Company Number: US-PFIZER INC-2013096440

PATIENT
  Age: 15 Year
  Sex: Male
  Weight: 62.13 kg

DRUGS (2)
  1. ADVIL ALLERGY AND CONGESTION RELIEF [Suspect]
     Indication: NASAL CONGESTION
     Dosage: ONE TABLET ONCE ONLY
     Route: 048
     Dates: start: 20130323, end: 20130323
  2. ADVIL ALLERGY AND CONGESTION RELIEF [Suspect]
     Indication: HYPERSENSITIVITY

REACTIONS (1)
  - Epistaxis [Recovered/Resolved]
